FAERS Safety Report 14870890 (Version 4)
Quarter: 2018Q4

REPORT INFORMATION
  Report Type: Spontaneous
  Country: US (occurrence: US)
  Receive Date: 20180509
  Receipt Date: 20181106
  Transmission Date: 20190204
  Serious: Yes (Hospitalization)
  Sender: FDA-Public Use
  Company Number: US-PFIZER INC-2018189125

PATIENT
  Age: 68 Year
  Sex: Female

DRUGS (3)
  1. XELJANZ XR [Suspect]
     Active Substance: TOFACITINIB CITRATE
     Indication: OSTEOPOROSIS
  2. XELJANZ XR [Suspect]
     Active Substance: TOFACITINIB CITRATE
     Indication: RHEUMATOID ARTHRITIS
     Dosage: 11 MG, 1X/DAY
     Route: 048
     Dates: start: 20170503
  3. XELJANZ XR [Suspect]
     Active Substance: TOFACITINIB CITRATE
     Indication: MYOPATHY
     Dosage: 11 MG, UNK

REACTIONS (12)
  - Back pain [Unknown]
  - Arthritis [Unknown]
  - Malaise [Recovering/Resolving]
  - Blood glucose decreased [Unknown]
  - Product dose omission [Recovered/Resolved]
  - Balance disorder [Unknown]
  - Peripheral swelling [Recovered/Resolved]
  - Musculoskeletal pain [Unknown]
  - Blood pressure increased [Unknown]
  - Asthenia [Unknown]
  - Erythema [Unknown]
  - Fall [Unknown]

NARRATIVE: CASE EVENT DATE: 201804
